FAERS Safety Report 17243679 (Version 3)
Quarter: 2020Q1

REPORT INFORMATION
  Report Type: Spontaneous
  Country: DE (occurrence: DE)
  Receive Date: 20200107
  Receipt Date: 20200323
  Transmission Date: 20200409
  Serious: Yes (Other)
  Sender: FDA-Public Use
  Company Number: DE-MYLANLABS-2020M1001026

PATIENT
  Age: 72 Year
  Sex: Male
  Weight: 134 kg

DRUGS (13)
  1. JARDIANCE [Concomitant]
     Active Substance: EMPAGLIFLOZIN
     Dosage: 1-0-0-0
  2. VALSARTAN BASICS [Concomitant]
     Dosage: 1-0-0-0
  3. METOPROLOL AL [Concomitant]
     Dosage: 1-0-0-0
  4. TAMSULOSIN AL [Concomitant]
     Dosage: 0-0-1-0
  5. LIXIANA [Concomitant]
     Active Substance: EDOXABAN TOSYLATE
     Dosage: 0-1-0-0
  6. METFORMIN [Concomitant]
     Active Substance: METFORMIN HYDROCHLORIDE
     Dosage: 1-0-1-0
  7. VALSARTAN DURA [Suspect]
     Active Substance: VALSARTAN
     Indication: PRODUCT USED FOR UNKNOWN INDICATION
     Dosage: 160 MILLIGRAM, AM (ONCE IN THE MORNING)
     Route: 048
     Dates: start: 2016
  8. TORASEMID-1A PHARMA [Concomitant]
     Active Substance: TORSEMIDE
     Dosage: 1-0-0-0
  9. ASS 1 A PHARMA [Concomitant]
     Active Substance: ASPIRIN
     Dosage: UNK
  10. TILIDIN [Concomitant]
     Active Substance: NALOXONE HYDROCHLORIDE\TILIDINE HYDROCHLORIDE
     Dosage: 1-1-0-2
  11. LANTUS [Concomitant]
     Active Substance: INSULIN GLARGINE
     Dosage: UNK
  12. RETARD [Concomitant]
     Dosage: 1-1-0-2
  13. SIMVASTATIN. [Concomitant]
     Active Substance: SIMVASTATIN
     Dosage: 0-0-1-0

REACTIONS (3)
  - Quality of life decreased [Not Recovered/Not Resolved]
  - Mental impairment [Not Recovered/Not Resolved]
  - Prostate cancer [Not Recovered/Not Resolved]
